FAERS Safety Report 14228155 (Version 15)
Quarter: 2021Q1

REPORT INFORMATION
  Report Type: Spontaneous
  Country: US (occurrence: US)
  Receive Date: 20171127
  Receipt Date: 20210105
  Transmission Date: 20210419
  Serious: Yes (Hospitalization, Other)
  Sender: FDA-Public Use
  Company Number: US-OTSUKA-2017_014430

PATIENT
  Age: 22 Year
  Sex: Female
  Weight: 61.6 kg

DRUGS (87)
  1. ABILIFY [Suspect]
     Active Substance: ARIPIPRAZOLE
     Indication: BIPOLAR I DISORDER
     Dosage: 15 MG, QD
     Route: 048
     Dates: start: 200901, end: 201106
  2. ABILIFY [Suspect]
     Active Substance: ARIPIPRAZOLE
     Dosage: 20 MG, QD
     Route: 048
     Dates: start: 200507, end: 200901
  3. LITHOBID [Concomitant]
     Active Substance: LITHIUM CARBONATE
     Dosage: 900 MG, QD (300MG AT AM AND 600MG AT BED TIME)
     Route: 065
  4. LITHOBID [Concomitant]
     Active Substance: LITHIUM CARBONATE
     Dosage: 300 MG, Q3HR
     Route: 065
  5. LITHOBID [Concomitant]
     Active Substance: LITHIUM CARBONATE
     Dosage: 1050 MG, IN MORNING
     Route: 065
     Dates: start: 20080618
  6. WELLBUTRIN [Concomitant]
     Active Substance: BUPROPION HYDROCHLORIDE
     Indication: BIPOLAR DISORDER
     Dosage: 300 MG, QD
     Route: 048
     Dates: start: 19991029, end: 200606
  7. DEPO?PROVERA [Concomitant]
     Active Substance: MEDROXYPROGESTERONE ACETATE
     Dosage: UNK
     Route: 030
  8. DEPO?PROVERA [Concomitant]
     Active Substance: MEDROXYPROGESTERONE ACETATE
     Dosage: UNK
     Route: 030
  9. DEPO?PROVERA [Concomitant]
     Active Substance: MEDROXYPROGESTERONE ACETATE
     Dosage: UNK
     Route: 030
  10. DEPO?PROVERA [Concomitant]
     Active Substance: MEDROXYPROGESTERONE ACETATE
     Dosage: UNK
     Route: 030
  11. DEPO?PROVERA [Concomitant]
     Active Substance: MEDROXYPROGESTERONE ACETATE
     Dosage: UNK
     Route: 030
  12. DEPO?PROVERA [Concomitant]
     Active Substance: MEDROXYPROGESTERONE ACETATE
     Dosage: UNK
     Route: 030
  13. TOPAMAX [Concomitant]
     Active Substance: TOPIRAMATE
     Dosage: 25 MG, QD
     Route: 048
  14. VITAMIN D [Concomitant]
     Active Substance: VITAMIN D NOS
     Indication: PRODUCT USED FOR UNKNOWN INDICATION
     Dosage: 5000 IU, QD (QAM)
     Route: 065
  15. ATIVAN [Concomitant]
     Active Substance: LORAZEPAM
     Dosage: 2 MG, QD
     Route: 048
  16. VITAMIN E [Concomitant]
     Active Substance: .ALPHA.-TOCOPHEROL
     Indication: PRODUCT USED FOR UNKNOWN INDICATION
     Dosage: 400 IU, QD (QHS)
     Route: 048
  17. DOXYCYCLINE. [Concomitant]
     Active Substance: DOXYCYCLINE
     Indication: PRODUCT USED FOR UNKNOWN INDICATION
     Dosage: 100 MG, QD
     Route: 065
  18. BUPROPION HCL [Concomitant]
     Active Substance: BUPROPION HYDROCHLORIDE
     Indication: PRODUCT USED FOR UNKNOWN INDICATION
     Dosage: 150 MG, QD
     Route: 048
  19. NALTREXONE [Concomitant]
     Active Substance: NALTREXONE
     Indication: PRODUCT USED FOR UNKNOWN INDICATION
     Dosage: 50 MG, UNK
     Route: 065
     Dates: start: 20060413
  20. INDERAL [Concomitant]
     Active Substance: PROPRANOLOL HYDROCHLORIDE
     Indication: ANXIETY
     Dosage: 10 MG, QD
     Route: 048
  21. WELLBUTRIN [Concomitant]
     Active Substance: BUPROPION HYDROCHLORIDE
     Dosage: 100 MG, QD (IN MORNING)
     Route: 065
  22. DEPO?PROVERA [Concomitant]
     Active Substance: MEDROXYPROGESTERONE ACETATE
     Dosage: UNK
     Route: 030
     Dates: start: 20180921
  23. DEPO?PROVERA [Concomitant]
     Active Substance: MEDROXYPROGESTERONE ACETATE
     Dosage: UNK
     Route: 030
  24. ATIVAN [Concomitant]
     Active Substance: LORAZEPAM
     Indication: PANIC DISORDER
     Dosage: 0.5 MG, QD
     Route: 048
  25. OMEPRAZOLE. [Concomitant]
     Active Substance: OMEPRAZOLE
     Indication: PRODUCT USED FOR UNKNOWN INDICATION
     Dosage: 20 MG, QD
     Route: 048
  26. TRILEPTAL [Concomitant]
     Active Substance: OXCARBAZEPINE
     Dosage: 1050 MG, QD (450MG AT AM AND 600MG AT BED TIME)
     Route: 065
  27. DEPO?PROVERA [Concomitant]
     Active Substance: MEDROXYPROGESTERONE ACETATE
     Dosage: UNK
     Route: 030
  28. TOPAMAX [Concomitant]
     Active Substance: TOPIRAMATE
     Indication: PRODUCT USED FOR UNKNOWN INDICATION
     Dosage: 125 MG, UNK
     Route: 065
  29. LITHIUM. [Concomitant]
     Active Substance: LITHIUM
     Dosage: 1200 MG, QD (300 MG TAKE 4 QHS)
     Route: 048
  30. LITHIUM. [Concomitant]
     Active Substance: LITHIUM
     Dosage: 1050 MG, QD AT NIGHT
     Dates: start: 20200618
  31. NALTREXONE [Concomitant]
     Active Substance: NALTREXONE
     Dosage: 100 MG, UNK
     Route: 065
     Dates: start: 20060418
  32. MINOCIN [Concomitant]
     Active Substance: MINOCYCLINE HYDROCHLORIDE
     Indication: PRODUCT USED FOR UNKNOWN INDICATION
     Dosage: 100 MG, UNK
     Route: 065
  33. DEPO?PROVERA [Concomitant]
     Active Substance: MEDROXYPROGESTERONE ACETATE
     Dosage: UNK
     Route: 030
  34. DEPO?PROVERA [Concomitant]
     Active Substance: MEDROXYPROGESTERONE ACETATE
     Dosage: UNK
     Route: 030
  35. GARDASIL [Concomitant]
     Active Substance: HUMAN PAPILLOMAVIRUS QUADRIVALENT (TYPES 6, 11, 16, AND 18) VACCINE, RECOMBINANT
     Dosage: UNK
     Route: 030
  36. CALCIUM [Concomitant]
     Active Substance: CALCIUM
     Indication: PRODUCT USED FOR UNKNOWN INDICATION
     Dosage: 1000 MG, QD (QHS)
     Route: 048
  37. SODIUM CHLORIDE. [Concomitant]
     Active Substance: SODIUM CHLORIDE
     Indication: PRODUCT USED FOR UNKNOWN INDICATION
     Dosage: 1000 ML, UNK
     Route: 042
  38. ABILIFY [Suspect]
     Active Substance: ARIPIPRAZOLE
     Dosage: 15 MG, QD
     Route: 048
     Dates: start: 200402, end: 200507
  39. WELLBUTRIN [Concomitant]
     Active Substance: BUPROPION HYDROCHLORIDE
     Dosage: 150 MG, BID
     Route: 065
  40. WELLBUTRIN [Concomitant]
     Active Substance: BUPROPION HYDROCHLORIDE
     Dosage: 150 MG, QHS
     Route: 048
  41. TRILEPTAL [Concomitant]
     Active Substance: OXCARBAZEPINE
     Dosage: 300 MG, UNK
     Route: 065
     Dates: start: 20010926
  42. DEPO?PROVERA [Concomitant]
     Active Substance: MEDROXYPROGESTERONE ACETATE
     Indication: PELVIC PAIN
     Dosage: 150 MG/ML ONE DOSE IM EVERY 3 MONTHS
     Route: 030
  43. DEPO?PROVERA [Concomitant]
     Active Substance: MEDROXYPROGESTERONE ACETATE
     Dosage: UNK
     Route: 030
  44. DEPO?PROVERA [Concomitant]
     Active Substance: MEDROXYPROGESTERONE ACETATE
     Dosage: UNK
     Route: 030
     Dates: start: 201809
  45. DEPO?PROVERA [Concomitant]
     Active Substance: MEDROXYPROGESTERONE ACETATE
     Dosage: UNK
     Route: 030
  46. DEPO?PROVERA [Concomitant]
     Active Substance: MEDROXYPROGESTERONE ACETATE
     Dosage: UNK
     Route: 030
  47. VITAMIN C [Concomitant]
     Active Substance: ASCORBIC ACID
     Indication: PRODUCT USED FOR UNKNOWN INDICATION
     Dosage: 500 MG, QD (QHS)
     Route: 048
  48. LITHIUM. [Concomitant]
     Active Substance: LITHIUM
     Indication: PRODUCT USED FOR UNKNOWN INDICATION
     Dosage: 900 MG, QD (300 MG QAM AND 600 MG QHS)
     Route: 065
  49. PREDNISONE. [Concomitant]
     Active Substance: PREDNISONE
     Indication: PRODUCT USED FOR UNKNOWN INDICATION
     Dosage: UNK
     Route: 065
  50. METFORMIN [Concomitant]
     Active Substance: METFORMIN HYDROCHLORIDE
     Indication: PRODUCT USED FOR UNKNOWN INDICATION
     Dosage: 1000 MG, QD
     Route: 048
  51. ABILIFY [Suspect]
     Active Substance: ARIPIPRAZOLE
     Dosage: 1 DF, QHS (1 DF, STARTING AT 5MG TO 35MG)
     Route: 048
     Dates: start: 2003
  52. TRILEPTAL [Concomitant]
     Active Substance: OXCARBAZEPINE
     Indication: PRODUCT USED FOR UNKNOWN INDICATION
     Dosage: 1050 MG, UNK
     Route: 065
  53. NEXPLANON [Concomitant]
     Active Substance: ETONOGESTREL
     Indication: PRODUCT USED FOR UNKNOWN INDICATION
     Dosage: 68 MG, UNK
     Route: 065
  54. SEROQUEL [Concomitant]
     Active Substance: QUETIAPINE FUMARATE
     Dosage: 300 MG, UNK
     Route: 065
     Dates: start: 20011130
  55. DEPO?PROVERA [Concomitant]
     Active Substance: MEDROXYPROGESTERONE ACETATE
     Dosage: UNK
     Route: 030
  56. DEPO?PROVERA [Concomitant]
     Active Substance: MEDROXYPROGESTERONE ACETATE
     Dosage: UNK
     Route: 030
  57. GARDASIL [Concomitant]
     Active Substance: HUMAN PAPILLOMAVIRUS QUADRIVALENT (TYPES 6, 11, 16, AND 18) VACCINE, RECOMBINANT
     Indication: PRODUCT USED FOR UNKNOWN INDICATION
     Dosage: UNK
     Route: 030
  58. VITAMIN C [Concomitant]
     Active Substance: ASCORBIC ACID
     Dosage: 300 MG, QD (QHS)
     Route: 048
  59. PROBIOTIC [Concomitant]
     Active Substance: PROBIOTICS NOS
     Indication: PRODUCT USED FOR UNKNOWN INDICATION
     Dosage: UNK, QD
     Route: 065
  60. NALTREXONE [Concomitant]
     Active Substance: NALTREXONE
     Dosage: 150 MG, UNK
     Route: 065
     Dates: start: 20060514
  61. PROAIR HFA [Concomitant]
     Active Substance: ALBUTEROL SULFATE
     Indication: WHEEZING
     Dosage: 90 ?G, UNK (Q 6 HOURS AS NEEDED)
     Route: 065
  62. TYLENOL [Concomitant]
     Active Substance: ACETAMINOPHEN
     Indication: PAIN
  63. ABILIFY [Suspect]
     Active Substance: ARIPIPRAZOLE
     Dosage: 30 MG, QD
     Route: 048
     Dates: end: 201412
  64. LITHOBID [Concomitant]
     Active Substance: LITHIUM CARBONATE
     Indication: BIPOLAR DISORDER
     Dosage: 900 MG, QD (QAM)
     Route: 048
  65. LAMICTAL [Concomitant]
     Active Substance: LAMOTRIGINE
     Indication: PRODUCT USED FOR UNKNOWN INDICATION
     Dosage: 25 MG, UNK
     Route: 065
  66. DEPO?PROVERA [Concomitant]
     Active Substance: MEDROXYPROGESTERONE ACETATE
     Dosage: UNK
     Route: 030
  67. AMBIEN [Concomitant]
     Active Substance: ZOLPIDEM TARTRATE
     Indication: INSOMNIA
     Dosage: 10 MG, QD (QHS)
     Route: 048
  68. ATIVAN [Concomitant]
     Active Substance: LORAZEPAM
     Dosage: 1 MG, QD
     Route: 048
  69. LITHIUM. [Concomitant]
     Active Substance: LITHIUM
     Dosage: 1200 MG, UNK
     Route: 065
  70. LITHIUM. [Concomitant]
     Active Substance: LITHIUM
     Dosage: 750 MG, UNK
     Route: 065
     Dates: start: 20010517
  71. IMPLANON [Concomitant]
     Active Substance: ETONOGESTREL
     Indication: PRODUCT USED FOR UNKNOWN INDICATION
     Dosage: 68 MG, UNK
     Route: 065
  72. DONEPEZIL HCL [Concomitant]
     Active Substance: DONEPEZIL HYDROCHLORIDE
     Indication: PRODUCT USED FOR UNKNOWN INDICATION
     Dosage: 5 MG, UNK
     Route: 065
  73. LATUDA [Concomitant]
     Active Substance: LURASIDONE HYDROCHLORIDE
     Indication: PRODUCT USED FOR UNKNOWN INDICATION
     Dosage: 20 MG, QD
     Route: 048
  74. ABILIFY [Suspect]
     Active Substance: ARIPIPRAZOLE
     Dosage: 10 MG, QD
     Route: 048
     Dates: start: 200311, end: 200401
  75. ABILIFY [Suspect]
     Active Substance: ARIPIPRAZOLE
     Dosage: 10 MG, QD EVERY MORNING
     Route: 065
  76. LITHOBID [Concomitant]
     Active Substance: LITHIUM CARBONATE
     Dosage: 1200 MG, QD (QHS)
     Route: 048
  77. WELLBUTRIN [Concomitant]
     Active Substance: BUPROPION HYDROCHLORIDE
     Dosage: 200 MG, UNK
     Route: 065
  78. ZITHROMAX [Concomitant]
     Active Substance: AZITHROMYCIN DIHYDRATE
     Indication: PRODUCT USED FOR UNKNOWN INDICATION
     Dosage: 1 DF, QD
     Route: 065
  79. SEROQUEL [Concomitant]
     Active Substance: QUETIAPINE FUMARATE
     Indication: PRODUCT USED FOR UNKNOWN INDICATION
     Dosage: 100 MG, QD (AT BED TIME)
     Route: 065
  80. SEROQUEL [Concomitant]
     Active Substance: QUETIAPINE FUMARATE
     Dosage: 50MG, QD (IN EVENING)
     Route: 065
  81. DEPO?PROVERA [Concomitant]
     Active Substance: MEDROXYPROGESTERONE ACETATE
     Dosage: UNK
     Route: 030
  82. DEPO?PROVERA [Concomitant]
     Active Substance: MEDROXYPROGESTERONE ACETATE
     Dosage: UNK
     Route: 030
  83. DEPO?PROVERA [Concomitant]
     Active Substance: MEDROXYPROGESTERONE ACETATE
     Dosage: UNK
     Route: 030
  84. VITAMIN D [Concomitant]
     Active Substance: VITAMIN D NOS
     Dosage: 2000 IU, QD (QAM)
     Route: 065
  85. DDAVP [Concomitant]
     Active Substance: DESMOPRESSIN ACETATE
     Indication: DIABETES INSIPIDUS
     Dosage: 1 DF, AS REQUIRED
     Route: 045
  86. FLOVENT HFA [Concomitant]
     Active Substance: FLUTICASONE PROPIONATE
     Indication: PRODUCT USED FOR UNKNOWN INDICATION
     Dosage: 110 ?G, BID
     Route: 065
  87. TYLENOL [Concomitant]
     Active Substance: ACETAMINOPHEN
     Indication: PYREXIA
     Dosage: 1000 MG, EVERY 6 H
     Route: 065
     Dates: start: 20080618

REACTIONS (58)
  - Weight decreased [Unknown]
  - Obsessive-compulsive disorder [Recovering/Resolving]
  - Impulse-control disorder [Recovered/Resolved]
  - Hypersensitivity vasculitis [Unknown]
  - Sexually inappropriate behaviour [Recovering/Resolving]
  - Neutrophil count increased [Unknown]
  - Malaise [Unknown]
  - Alanine aminotransferase increased [Unknown]
  - Treatment noncompliance [Unknown]
  - Mental disorder [Unknown]
  - Neuropsychiatric symptoms [Unknown]
  - Sexually transmitted disease [Recovered/Resolved]
  - Premenstrual dysphoric disorder [Unknown]
  - Psychological trauma [Unknown]
  - Ovarian cyst ruptured [Unknown]
  - Mouth ulceration [Unknown]
  - Albumin urine present [Unknown]
  - Rosacea [Unknown]
  - Pyrexia [Unknown]
  - Compulsive shopping [Unknown]
  - Loss of employment [Unknown]
  - Behavioural addiction [Recovered/Resolved]
  - Urine albumin/creatinine ratio increased [Unknown]
  - Abdominal pain lower [Unknown]
  - Glomerular filtration rate decreased [Unknown]
  - Constipation [Unknown]
  - Anxiety [Not Recovered/Not Resolved]
  - Suicidal ideation [Unknown]
  - Personality disorder [Recovered/Resolved]
  - Bacterial vaginosis [Unknown]
  - Red blood cell count increased [Unknown]
  - Menorrhagia [Unknown]
  - Hypersexuality [Recovered/Resolved]
  - Weight increased [Unknown]
  - Diarrhoea [Unknown]
  - Urinary incontinence [Unknown]
  - Vomiting [Unknown]
  - Gambling disorder [Recovered/Resolved]
  - Injury [Unknown]
  - Dysplasia [Unknown]
  - Lip pain [Unknown]
  - Menstrual disorder [Unknown]
  - Cough [Unknown]
  - Shoplifting [Unknown]
  - Economic problem [Unknown]
  - White blood cell count increased [Recovering/Resolving]
  - Haematemesis [Unknown]
  - Protein urine present [Unknown]
  - Emotional distress [Unknown]
  - Thirst [Unknown]
  - Insomnia [Unknown]
  - Nausea [Unknown]
  - Eating disorder [Unknown]
  - Psychosexual disorder [Recovered/Resolved]
  - Impulsive behaviour [Recovered/Resolved]
  - Herpes zoster [Unknown]
  - Pharyngitis streptococcal [Unknown]
  - Theft [Unknown]

NARRATIVE: CASE EVENT DATE: 200312
